FAERS Safety Report 7990548-5 (Version None)
Quarter: 2011Q4

REPORT INFORMATION
  Report Type: 
  Country: None (occurrence: None)
  Receive Date: 20111219
  Receipt Date: 20110329
  Transmission Date: 20120403
  Serious: No
  Sender: FDA-Public Use
  Company Number: US-ASTRAZENECA-2011SE13681

PATIENT
  Age: 61 Year
  Sex: Male
  Weight: 58.1 kg

DRUGS (10)
  1. CRESTOR [Suspect]
     Route: 048
  2. ALTACE [Concomitant]
     Indication: HYPERTENSION
     Route: 048
  3. CRESTOR [Suspect]
     Indication: HYPERCHOLESTEROLAEMIA
     Route: 048
  4. CRESTOR [Suspect]
     Route: 048
  5. CRESTOR [Suspect]
     Route: 048
  6. CRESTOR [Suspect]
     Route: 048
     Dates: start: 20100101, end: 20110201
  7. CRESTOR [Suspect]
     Indication: HYPERLIPIDAEMIA
     Route: 048
  8. CRESTOR [Suspect]
     Route: 048
  9. CRESTOR [Suspect]
     Route: 048
     Dates: start: 20100101, end: 20110201
  10. ZANTAC [Concomitant]
     Indication: GASTROOESOPHAGEAL REFLUX DISEASE
     Route: 048

REACTIONS (1)
  - THROMBOCYTOPENIA [None]
